FAERS Safety Report 11303097 (Version 2)
Quarter: 2015Q3

REPORT INFORMATION
  Report Type: Spontaneous
  Country: US (occurrence: US)
  Receive Date: 20150723
  Receipt Date: 20150824
  Transmission Date: 20151125
  Serious: No
  Sender: FDA-Public Use
  Company Number: US-TEVA-580577ACC

PATIENT
  Age: 44 Year
  Sex: Female
  Weight: 71.73 kg

DRUGS (2)
  1. MISOPROLOL [Concomitant]
     Active Substance: MISOPROSTOL
     Route: 048
     Dates: start: 20150709
  2. PARAGARD T 380A [Suspect]
     Active Substance: COPPER
     Indication: CONTRACEPTION
     Route: 015
     Dates: start: 20150709, end: 20150709

REACTIONS (3)
  - Pain [Recovered/Resolved with Sequelae]
  - Complication of device insertion [Recovered/Resolved with Sequelae]
  - Muscle spasms [Recovered/Resolved with Sequelae]

NARRATIVE: CASE EVENT DATE: 20150709
